FAERS Safety Report 11215147 (Version 3)
Quarter: 2016Q2

REPORT INFORMATION
  Report Type: Report from Study
  Country: US (occurrence: US)
  Receive Date: 20150624
  Receipt Date: 20160420
  Transmission Date: 20160815
  Serious: Yes (Other)
  Sender: FDA-Public Use
  Company Number: US-SA-2014SA024072

PATIENT
  Age: 48 Year
  Sex: Female

DRUGS (2)
  1. AUBAGIO [Suspect]
     Active Substance: TERIFLUNOMIDE
     Indication: MULTIPLE SCLEROSIS
     Route: 048
     Dates: start: 20130606
  2. BETASERON [Concomitant]
     Active Substance: INTERFERON BETA-1B
     Indication: MULTIPLE SCLEROSIS
     Dates: start: 20020101, end: 20130603

REACTIONS (7)
  - Kidney infection [Recovering/Resolving]
  - Mobility decreased [Not Recovered/Not Resolved]
  - Balance disorder [Unknown]
  - Hypoaesthesia [Unknown]
  - Condition aggravated [Unknown]
  - Musculoskeletal stiffness [Unknown]
  - Diarrhoea [Not Recovered/Not Resolved]

NARRATIVE: CASE EVENT DATE: 2013
